FAERS Safety Report 6308696-4 (Version None)
Quarter: 2009Q3

REPORT INFORMATION
  Report Type: 
  Country: None (occurrence: None)
  Receive Date: 20090813
  Receipt Date: 20090804
  Transmission Date: 20100115
  Serious: No
  Sender: FDA-Public Use
  Company Number: US-PFIZER INC-2009241942

PATIENT
  Age: 80 Year
  Sex: Male

DRUGS (4)
  1. TOVIAZ [Suspect]
     Indication: HYPERTONIC BLADDER
     Dosage: 4 MG, UNK
  2. ACTOS [Concomitant]
  3. RASAGILINE [Concomitant]
     Dosage: UNK
  4. SINEMET [Concomitant]
     Dosage: UNK

REACTIONS (1)
  - VISION BLURRED [None]
